FAERS Safety Report 5069036-4 (Version None)
Quarter: 2006Q3

REPORT INFORMATION
  Report Type: 
  Country: None (occurrence: None)
  Receive Date: 20060728
  Receipt Date: 20060206
  Transmission Date: 20061208
  Serious: No
  Sender: FDA-Public Use
  Company Number: 13452

PATIENT
  Sex: Male

DRUGS (5)
  1. DOXORUBICIN [Suspect]
  2. VINCRISTINE SULFATE [Suspect]
  3. MABTHERA [Suspect]
  4. CYCLOPHOSPHAMIDE [Suspect]
  5. PREDNISONE TAB [Suspect]

REACTIONS (2)
  - DYSPNOEA [None]
  - LOCAL SWELLING [None]
